FAERS Safety Report 25310559 (Version 2)
Quarter: 2025Q2

REPORT INFORMATION
  Report Type: Spontaneous
  Country: US (occurrence: US)
  Receive Date: 20250514
  Receipt Date: 20250526
  Transmission Date: 20250717
  Serious: No
  Sender: JIANGSU HENGRUI
  Company Number: US-JIANGSU HENGRUI PHARMACEUTICALS CO., LTD.-H2025001202835

PATIENT
  Age: 74 Year

DRUGS (1)
  1. GADOBUTROL [Suspect]
     Active Substance: GADOBUTROL
     Indication: Magnetic resonance imaging head

REACTIONS (2)
  - Pruritus [Recovered/Resolved]
  - Urticaria [Recovered/Resolved]
